FAERS Safety Report 6855085-X (Version None)
Quarter: 2010Q3

REPORT INFORMATION
  Report Type: 
  Country: None (occurrence: None)
  Receive Date: 20100717
  Receipt Date: 20081125
  Transmission Date: 20110219
  Serious: Yes (Hospitalization)
  Sender: FDA-Public Use
  Company Number: US-PFIZER INC-2007108919

PATIENT
  Age: 37 Year
  Sex: Female
  Weight: 67.12 kg

DRUGS (1)
  1. CHANTIX [Suspect]
     Indication: SMOKING CESSATION THERAPY
     Dosage: ONE PILL TWICE DAILY
     Route: 048
     Dates: start: 20071101, end: 20071105

REACTIONS (2)
  - AMNESIA [None]
  - PSYCHOTIC DISORDER [None]
